FAERS Safety Report 24985696 (Version 1)
Quarter: 2025Q1

REPORT INFORMATION
  Report Type: Spontaneous
  Country: US (occurrence: None)
  Receive Date: 20250217
  Receipt Date: 20250217
  Transmission Date: 20250408
  Serious: No
  Sender: FDA-CTU
  Company Number: None

PATIENT
  Age: 55 Year
  Sex: Female
  Weight: 58.5 kg

DRUGS (5)
  1. SULFAMETHOXAZOLE AND TRIMETHOPRIM [Suspect]
     Active Substance: SULFAMETHOXAZOLE\TRIMETHOPRIM
     Indication: Lymphadenopathy
     Dosage: OTHER QUANTITY : 14 TABLET(S);?FREQUENCY : TWICE A DAY;?
     Route: 048
     Dates: start: 20250208, end: 20250216
  2. SULFAMETHOXAZOLE AND TRIMETHOPRIM [Suspect]
     Active Substance: SULFAMETHOXAZOLE\TRIMETHOPRIM
     Indication: Infection
  3. Benadryl sleep aide [Concomitant]
  4. MELATONIN [Concomitant]
     Active Substance: MELATONIN
  5. L THEANINE [Concomitant]

REACTIONS (12)
  - Groin pain [None]
  - Lymph node pain [None]
  - Myalgia [None]
  - Pain of skin [None]
  - Pain in extremity [None]
  - Pelvic pain [None]
  - Arthralgia [None]
  - Musculoskeletal pain [None]
  - Flatulence [None]
  - Hyperaesthesia [None]
  - Proctalgia [None]
  - Burning sensation [None]

NARRATIVE: CASE EVENT DATE: 20250214
